FAERS Safety Report 11929498 (Version 1)
Quarter: 2016Q1

REPORT INFORMATION
  Report Type: Spontaneous
  Country: US (occurrence: None)
  Receive Date: 20160119
  Receipt Date: 20160119
  Transmission Date: 20160526
  Serious: No
  Sender: FDA-Public Use
  Company Number: None

PATIENT
  Age: 14 Month
  Sex: Male
  Weight: 10 kg

DRUGS (2)
  1. COLOUR FREE PARACETAMOL DROPS 100MG PHARMACY HEALTH [Suspect]
     Active Substance: ACETAMINOPHEN
     Indication: IRRITABILITY
     Route: 048
     Dates: start: 20160104, end: 20160104
  2. COLOUR FREE PARACETAMOL DROPS 100MG PHARMACY HEALTH [Suspect]
     Active Substance: ACETAMINOPHEN
     Indication: PYREXIA
     Route: 048
     Dates: start: 20160104, end: 20160104

REACTIONS (3)
  - Mouth ulceration [None]
  - Initial insomnia [None]
  - Psychomotor hyperactivity [None]

NARRATIVE: CASE EVENT DATE: 20160104
